FAERS Safety Report 24071609 (Version 1)
Quarter: 2024Q3

REPORT INFORMATION
  Report Type: Spontaneous
  Country: US (occurrence: None)
  Receive Date: 20240709
  Receipt Date: 20240709
  Transmission Date: 20241017
  Serious: No
  Sender: Public
  Company Number: None

PATIENT
  Age: 55 Year
  Sex: Female

DRUGS (1)
  1. POMALYST [Suspect]
     Active Substance: POMALIDOMIDE
     Indication: Plasma cell myeloma
     Dosage: FREQUENCY : DAILY;?
     Route: 048
     Dates: start: 20210518

REACTIONS (5)
  - Atypical pneumonia [None]
  - Atypical pneumonia [None]
  - Oropharyngeal pain [None]
  - Upper respiratory tract congestion [None]
  - Productive cough [None]

NARRATIVE: CASE EVENT DATE: 20240624
